FAERS Safety Report 10233424 (Version 1)
Quarter: 2014Q2

REPORT INFORMATION
  Report Type: Spontaneous
  Country: US (occurrence: None)
  Receive Date: 20140506
  Receipt Date: 20140506
  Transmission Date: 20141212
  Serious: Yes (Hospitalization)
  Sender: FDA-Public Use
  Company Number: 1207685

PATIENT
  Sex: Male

DRUGS (1)
  1. AVASTATIN (BEVACIZUMAB) [Suspect]
     Indication: GLIOBLASTOMA MULTIFORME

REACTIONS (3)
  - Gastrointestinal perforation [None]
  - Diverticulitis [None]
  - Gastrointestinal haemorrhage [None]
